FAERS Safety Report 7943329-2 (Version None)
Quarter: 2011Q4

REPORT INFORMATION
  Report Type: 
  Country: None (occurrence: None)
  Receive Date: 20111128
  Receipt Date: 20111123
  Transmission Date: 20120403
  Serious: Yes (Hospitalization, Other)
  Sender: FDA-Public Use
  Company Number: PHHY2011DE46631

PATIENT
  Sex: Female

DRUGS (4)
  1. EXTAVIA [Suspect]
     Dosage: 125 UG, QOD
     Route: 058
     Dates: start: 20110523, end: 20110601
  2. EXTAVIA [Suspect]
     Indication: MULTIPLE SCLEROSIS
     Dosage: 62.5 UG, QOD
     Route: 058
     Dates: start: 20110517, end: 20110521
  3. EXTAVIA [Suspect]
     Dosage: 62.5 UG, QOD
     Route: 058
     Dates: start: 20110601, end: 20110818
  4. EXTAVIA [Suspect]
     Dosage: 125 UG, QOD
     Route: 058
     Dates: start: 20110909

REACTIONS (23)
  - UTERINE CYST [None]
  - SLEEP DISORDER [None]
  - STRESS [None]
  - DYSPNOEA [None]
  - THROAT IRRITATION [None]
  - HEADACHE [None]
  - VOMITING [None]
  - HYPOAESTHESIA [None]
  - ORAL CANDIDIASIS [None]
  - INFLUENZA [None]
  - OOPHORITIS [None]
  - ABDOMINAL DISCOMFORT [None]
  - ABDOMINAL PAIN [None]
  - PYREXIA [None]
  - MULTIPLE SCLEROSIS RELAPSE [None]
  - CYSTITIS [None]
  - INJECTION SITE ERYTHEMA [None]
  - FEELING HOT [None]
  - HOT FLUSH [None]
  - CHILLS [None]
  - NAUSEA [None]
  - MIGRAINE [None]
  - INFLUENZA LIKE ILLNESS [None]
